FAERS Safety Report 10203131 (Version 1)
Quarter: 2014Q2

REPORT INFORMATION
  Report Type: Spontaneous
  Country: GB (occurrence: GB)
  Receive Date: 20140529
  Receipt Date: 20140529
  Transmission Date: 20141212
  Serious: Yes (Other)
  Sender: FDA-Public Use
  Company Number: GB-ACCORD-023923

PATIENT
  Age: 61 Year
  Sex: Female
  Weight: 60.3 kg

DRUGS (11)
  1. SIMVASTATIN [Suspect]
     Indication: PRODUCT USED FOR UNKNOWN INDICATION
  2. FLUTICASONE [Concomitant]
     Dates: start: 20140428
  3. KLIOVANCE [Concomitant]
     Dates: start: 20140217, end: 20140512
  4. QVAR [Concomitant]
     Dates: start: 20140221
  5. TRAMADOL [Concomitant]
     Dates: start: 20140221, end: 20140509
  6. FEMOSTON [Concomitant]
     Dates: start: 20140513
  7. MOMETASONE [Concomitant]
     Dates: start: 20140221
  8. SALAMOL [Concomitant]
     Dates: start: 20140221
  9. SALBUTAMOL [Concomitant]
     Dates: start: 20140221
  10. NAPROXEN [Concomitant]
     Dates: start: 20140124, end: 20140221
  11. PREMPAK [Concomitant]
     Dates: start: 20140214, end: 20140509

REACTIONS (1)
  - Weight increased [Unknown]
